FAERS Safety Report 11469008 (Version 3)
Quarter: 2015Q4

REPORT INFORMATION
  Report Type: Spontaneous
  Country: FR (occurrence: FR)
  Receive Date: 20150908
  Receipt Date: 20151020
  Transmission Date: 20160304
  Serious: Yes (Hospitalization)
  Sender: FDA-Public Use
  Company Number: FR-DSJP-DSE-2015-127450

PATIENT

DRUGS (1)
  1. COOLMETEC 40 MG/ 12.5 MG [Suspect]
     Active Substance: HYDROCHLOROTHIAZIDE\OLMESARTAN MEDOXOMIL
     Indication: HYPERTENSION
     Dosage: 40/12.5 MG, QD
     Route: 048
     Dates: start: 20150523, end: 20150805

REACTIONS (4)
  - Venous thrombosis limb [Unknown]
  - Abnormal loss of weight [Recovered/Resolved]
  - Intestinal villi atrophy [Recovered/Resolved]
  - Gastrointestinal disorder [Recovered/Resolved]

NARRATIVE: CASE EVENT DATE: 2015
